FAERS Safety Report 9481809 (Version 1)
Quarter: 2013Q3

REPORT INFORMATION
  Report Type: Spontaneous
  Country: US (occurrence: US)
  Receive Date: 20130828
  Receipt Date: 20130828
  Transmission Date: 20140515
  Serious: Yes (Other)
  Sender: FDA-Public Use
  Company Number: US-AMGEN-KDL233490

PATIENT
  Age: 69 Year
  Sex: Female

DRUGS (1)
  1. ENBREL [Suspect]
     Indication: RHEUMATOID ARTHRITIS
     Dosage: 50 MG, QWK
     Route: 058
     Dates: start: 19990901

REACTIONS (4)
  - Carotid artery occlusion [Recovered/Resolved]
  - Femoral artery occlusion [Recovered/Resolved]
  - Pruritus generalised [Unknown]
  - Muscle spasms [Unknown]
